FAERS Safety Report 8497689-7 (Version None)
Quarter: 2012Q3

REPORT INFORMATION
  Report Type: 
  Country: None (occurrence: None)
  Receive Date: 20120709
  Receipt Date: 20120614
  Transmission Date: 20120928
  Serious: No
  Sender: FDA-Public Use
  Company Number: US-AMGEN-USASP2012014429

PATIENT
  Age: 67 Year
  Sex: Female

DRUGS (4)
  1. VITAMIN D [Concomitant]
     Dosage: 50 KIU, QWK
     Route: 048
  2. ENBREL [Suspect]
     Indication: PRODUCT USED FOR UNKNOWN INDICATION
     Dosage: 50 MG, QWK
     Route: 058
     Dates: start: 20110901
  3. METHOTREXATE [Concomitant]
     Dosage: 20 MG, QWK
     Route: 048
  4. FOLIC ACID [Concomitant]
     Dosage: 1 MG, QD
     Route: 048

REACTIONS (4)
  - PYREXIA [None]
  - COUGH [None]
  - INCREASED UPPER AIRWAY SECRETION [None]
  - FATIGUE [None]
